FAERS Safety Report 7368237-X (Version None)
Quarter: 2011Q1

REPORT INFORMATION
  Report Type: 
  Country: None (occurrence: None)
  Receive Date: 20110323
  Receipt Date: 20110318
  Transmission Date: 20110831
  Serious: Yes (Other)
  Sender: FDA-Public Use
  Company Number: US-PFIZER INC-2011059637

PATIENT

DRUGS (1)
  1. CELEBREX [Suspect]
     Dosage: UNK

REACTIONS (1)
  - GASTROINTESTINAL HAEMORRHAGE [None]
